FAERS Safety Report 20993215 (Version 1)
Quarter: 2022Q2

REPORT INFORMATION
  Report Type: Spontaneous
  Country: US (occurrence: None)
  Receive Date: 20220622
  Receipt Date: 20220622
  Transmission Date: 20220721
  Serious: No
  Sender: FDA-Public Use
  Company Number: None

PATIENT
  Age: 80 Year
  Sex: Male

DRUGS (1)
  1. KYNMOBI [Suspect]
     Active Substance: APOMORPHINE HYDROCHLORIDE
     Indication: Parkinson^s disease
     Dosage: OTHER FREQUENCY : UP TO 5 TIMES A DA;?
     Route: 060
     Dates: start: 20220525, end: 20220618

REACTIONS (3)
  - Drug ineffective [None]
  - Seizure [None]
  - Somnolence [None]

NARRATIVE: CASE EVENT DATE: 20220615
